FAERS Safety Report 8612973-1 (Version None)
Quarter: 2012Q3

REPORT INFORMATION
  Report Type: 
  Country: None (occurrence: None)
  Receive Date: 20120822
  Receipt Date: 20120723
  Transmission Date: 20120928
  Serious: Yes (Hospitalization, Other)
  Sender: FDA-Public Use
  Company Number: JP-009507513-1208JPN006989

PATIENT

DRUGS (4)
  1. DEPAS [Concomitant]
     Route: 048
  2. REMERON [Suspect]
     Route: 048
  3. ANAFRANIL [Concomitant]
     Route: 048
  4. [THERAPY UNSPECIFIED] [Concomitant]
     Route: 065

REACTIONS (2)
  - MULTIPLE DRUG OVERDOSE [None]
  - CONVULSION [None]
